FAERS Safety Report 15403284 (Version 1)
Quarter: 2018Q4

REPORT INFORMATION
  Report Type: Spontaneous
  Country: ES (occurrence: ES)
  Receive Date: 20180919
  Receipt Date: 20180919
  Transmission Date: 20190204
  Serious: Yes (Other)
  Sender: FDA-Public Use
  Company Number: ES-TEVA-2018-ES-956313

PATIENT
  Age: 77 Year
  Sex: Male
  Weight: 71 kg

DRUGS (5)
  1. DUTASTERIDA/TAMSULOSINA 0,5 MG/0,4 MG 30 C?PSULAS [Concomitant]
     Indication: PROSTATITIS
     Dosage: 1 DOSAGE FORMS DAILY;
     Route: 048
     Dates: start: 20110819
  2. PRAVASTATINA 10 MG COMPRIMIDO [Suspect]
     Active Substance: PRAVASTATIN
     Indication: TYPE IIA HYPERLIPIDAEMIA
     Dosage: 1 DOSAGE FORMS DAILY;
     Route: 048
     Dates: start: 20170926, end: 20180822
  3. OMEPRAZOL 20 MG C?PSULA [Concomitant]
     Indication: LARYNGITIS
     Route: 048
     Dates: start: 20121106
  4. LOSART?N 50 MG 28 COMPRIMIDOS [Concomitant]
     Indication: ESSENTIAL HYPERTENSION
     Dosage: 75 MILLIGRAM DAILY;
     Route: 048
     Dates: start: 20120413
  5. BIMATOPROST/TIMOLOL 0,3 MG/ML + 5 MG/ML COLIRIO [Concomitant]
     Indication: GLAUCOMA
     Route: 065

REACTIONS (2)
  - Myalgia [Not Recovered/Not Resolved]
  - Tendon rupture [Not Recovered/Not Resolved]

NARRATIVE: CASE EVENT DATE: 20180822
